FAERS Safety Report 24621294 (Version 1)
Quarter: 2024Q4

REPORT INFORMATION
  Report Type: Spontaneous
  Country: BR (occurrence: BR)
  Receive Date: 20241114
  Receipt Date: 20241114
  Transmission Date: 20250115
  Serious: Yes (Other)
  Sender: ANI
  Company Number: BR-ANIPHARMA-2024-BR-000107

PATIENT
  Sex: Female

DRUGS (2)
  1. ANASTROZOLE [Suspect]
     Active Substance: ANASTROZOLE
     Indication: Product used for unknown indication
     Dosage: 10 MILLIGRAM
  2. FELODIPINE\METOPROLOL SUCCINATE [Suspect]
     Active Substance: FELODIPINE\METOPROLOL SUCCINATE
     Dosage: 5/50
     Route: 048

REACTIONS (2)
  - Renal cancer [Unknown]
  - Breast cancer [Not Recovered/Not Resolved]
